FAERS Safety Report 7037976-2 (Version None)
Quarter: 2010Q4

REPORT INFORMATION
  Report Type: 
  Country: None (occurrence: None)
  Receive Date: 20101011
  Receipt Date: 20101005
  Transmission Date: 20110411
  Serious: Yes (Death, Other)
  Sender: FDA-Public Use
  Company Number: US-ROXANE LABORATORIES, INC.-2010-RO-01316RO

PATIENT
  Age: 67 Year
  Sex: Male

DRUGS (5)
  1. HYDROMORPHONE HCL [Suspect]
     Indication: PAIN
     Route: 037
  2. HYDROMORPHONE HCL [Suspect]
     Route: 042
  3. METHADONE [Suspect]
     Indication: PAIN
     Dosage: 80 MG
     Route: 048
  4. BUPIVACAINE HCL [Suspect]
     Indication: PAIN
     Dosage: 18 MG
     Route: 037
  5. PHENOL [Suspect]
     Indication: PAIN
     Route: 037

REACTIONS (2)
  - DEATH [None]
  - DRUG INEFFECTIVE [None]
